FAERS Safety Report 24874061 (Version 1)
Quarter: 2025Q1

REPORT INFORMATION
  Report Type: Spontaneous
  Country: US (occurrence: None)
  Receive Date: 20250121
  Receipt Date: 20250121
  Transmission Date: 20250409
  Serious: Yes (Death)
  Sender: FDA-CTU
  Company Number: None

PATIENT
  Age: 67 Year
  Sex: Female

DRUGS (10)
  1. PROMACTA [Suspect]
     Active Substance: ELTROMBOPAG OLAMINE
     Indication: Myelodysplastic syndrome
     Dosage: FREQUENCY : DAILY;?
     Route: 048
     Dates: start: 20240823, end: 20250117
  2. FUROSEMIDE [Concomitant]
     Active Substance: FUROSEMIDE
  3. INSULIN LISPRO [Concomitant]
     Active Substance: INSULIN LISPRO
  4. METOLAZONE [Concomitant]
     Active Substance: METOLAZONE
  5. VITAMINS [Concomitant]
     Active Substance: VITAMINS
  6. PULMICORT TURBUHALER [Concomitant]
     Active Substance: BUDESONIDE
  7. STEGLATRO [Concomitant]
     Active Substance: ERTUGLIFLOZIN PIDOLATE
  8. SUCRALFATE [Concomitant]
     Active Substance: SUCRALFATE
  9. TYLENOL [Concomitant]
     Active Substance: ACETAMINOPHEN
  10. ARFOMETROL [Concomitant]

REACTIONS (1)
  - Death [None]

NARRATIVE: CASE EVENT DATE: 20250117
